FAERS Safety Report 18650149 (Version 1)
Quarter: 2020Q4

REPORT INFORMATION
  Report Type: Spontaneous
  Country: US (occurrence: US)
  Receive Date: 20201222
  Receipt Date: 20201222
  Transmission Date: 20210114
  Serious: Yes (Hospitalization)
  Sender: FDA-Public Use
  Company Number: US-ASTRAZENECA-2020SF68505

PATIENT
  Sex: Female
  Weight: 78 kg

DRUGS (1)
  1. BYETTA [Suspect]
     Active Substance: EXENATIDE
     Indication: TYPE 2 DIABETES MELLITUS
     Dosage: 5MCG AND 5MCG TWICE A DAY
     Route: 058
     Dates: start: 2006

REACTIONS (7)
  - Wrong technique in device usage process [Unknown]
  - Nausea [Unknown]
  - Tremor [Not Recovered/Not Resolved]
  - Body height decreased [Unknown]
  - Intentional product misuse [Unknown]
  - Glycosylated haemoglobin increased [Unknown]
  - Device issue [Unknown]
